FAERS Safety Report 25461078 (Version 1)
Quarter: 2025Q2

REPORT INFORMATION
  Report Type: Spontaneous
  Country: US (occurrence: US)
  Receive Date: 20250620
  Receipt Date: 20250620
  Transmission Date: 20250717
  Serious: No
  Sender: HIKMA
  Company Number: HIKM2406199

PATIENT
  Sex: Male

DRUGS (1)
  1. ICOSAPENT ETHYL [Suspect]
     Active Substance: ICOSAPENT ETHYL
     Indication: Product used for unknown indication
     Dosage: TWO 1 GRAM CAPSULES TWICE DAILY
     Route: 048

REACTIONS (1)
  - Incorrect dose administered [Unknown]
